FAERS Safety Report 14546472 (Version 2)
Quarter: 2018Q1

REPORT INFORMATION
  Report Type: Report from Study
  Country: US (occurrence: US)
  Receive Date: 20180219
  Receipt Date: 20180308
  Transmission Date: 20180509
  Serious: Yes (Hospitalization)
  Sender: FDA-Public Use
  Company Number: PHEH2018US005557

PATIENT
  Sex: Male

DRUGS (3)
  1. TRAVATAN Z [Suspect]
     Active Substance: TRAVOPROST
     Indication: GLAUCOMA
     Dosage: 1 GTT, QD (OS)
     Route: 047
     Dates: start: 20050629
  2. PILOCARPINE. [Suspect]
     Active Substance: PILOCARPINE
     Indication: GLAUCOMA
     Dosage: 1 GTT, BID (OS)
     Route: 047
     Dates: start: 20100428
  3. COSOPT [Suspect]
     Active Substance: DORZOLAMIDE HYDROCHLORIDE\TIMOLOL MALEATE
     Indication: GLAUCOMA
     Dosage: 1 GTT, BID (OS)
     Route: 047
     Dates: start: 20040622

REACTIONS (3)
  - Lung neoplasm malignant [Unknown]
  - Confusional state [Unknown]
  - Bone cancer [Unknown]
